FAERS Safety Report 9735575 (Version 3)
Quarter: 2015Q3

REPORT INFORMATION
  Report Type: Spontaneous
  Country: US (occurrence: US)
  Receive Date: 20131206
  Receipt Date: 20150804
  Transmission Date: 20151125
  Serious: Yes (Other)
  Sender: FDA-Public Use
  Company Number: US-GILEAD-2009-0023972

PATIENT
  Age: 76 Year
  Sex: Female
  Weight: 49.44 kg

DRUGS (15)
  1. ZAROXOLYN [Concomitant]
     Active Substance: METOLAZONE
  2. LEVOTHYROXINE. [Concomitant]
     Active Substance: LEVOTHYROXINE
  3. OXYGEN. [Concomitant]
     Active Substance: OXYGEN
  4. WARFARIN [Concomitant]
     Active Substance: WARFARIN
  5. IRON [Concomitant]
     Active Substance: IRON
  6. ATENOLOL. [Concomitant]
     Active Substance: ATENOLOL
  7. PARACETAMOL/TRAMADOL HYDROCHLORIDE [Concomitant]
  8. AMBIEN [Concomitant]
     Active Substance: ZOLPIDEM TARTRATE
  9. TYLENOL [Concomitant]
     Active Substance: ACETAMINOPHEN
  10. LETAIRIS [Suspect]
     Active Substance: AMBRISENTAN
     Indication: PULMONARY ARTERIAL HYPERTENSION
     Route: 048
     Dates: start: 20090803
  11. DIGOXIN. [Concomitant]
     Active Substance: DIGOXIN
  12. SPIRONOLACTONE. [Concomitant]
     Active Substance: SPIRONOLACTONE
  13. TORSEMIDE. [Concomitant]
     Active Substance: TORSEMIDE
  14. SIMVASTATIN. [Concomitant]
     Active Substance: SIMVASTATIN
  15. ASPIRIN. [Concomitant]
     Active Substance: ASPIRIN

REACTIONS (5)
  - Epistaxis [Unknown]
  - Fluid retention [Unknown]
  - Dizziness [Unknown]
  - Left ventricular failure [Unknown]
  - Migraine [Not Recovered/Not Resolved]
